FAERS Safety Report 20343032 (Version 1)
Quarter: 2022Q1

REPORT INFORMATION
  Report Type: Spontaneous
  Country: US (occurrence: US)
  Receive Date: 20220117
  Receipt Date: 20220117
  Transmission Date: 20220423
  Serious: Yes (Hospitalization)
  Sender: FDA-Public Use
  Company Number: US-TAKEDA-2022TUS001987

PATIENT
  Sex: Male

DRUGS (6)
  1. LIVTENCITY [Suspect]
     Active Substance: MARIBAVIR
     Indication: Cytomegalovirus infection
     Dosage: 400 MILLIGRAM, BID
     Route: 065
     Dates: start: 202112
  2. LIVTENCITY [Suspect]
     Active Substance: MARIBAVIR
     Indication: Stem cell transplant
  3. TACROLIMUS [Concomitant]
     Active Substance: TACROLIMUS
     Dosage: UNK
  4. SIROLIMUS [Concomitant]
     Active Substance: SIROLIMUS
     Dosage: UNK
  5. RENVELA [Concomitant]
     Active Substance: SEVELAMER CARBONATE
     Dosage: UNK
  6. OMEPRAZOLE [Concomitant]
     Active Substance: OMEPRAZOLE
     Dosage: UNK

REACTIONS (1)
  - Hospitalisation [Unknown]
